FAERS Safety Report 9355506 (Version 2)
Quarter: 2013Q2

REPORT INFORMATION
  Report Type: Report from Study
  Country: US (occurrence: US)
  Receive Date: 20130619
  Receipt Date: 20130627
  Transmission Date: 20140414
  Serious: Yes (Hospitalization)
  Sender: FDA-Public Use
  Company Number: US-UCBSA-088951

PATIENT
  Age: 8 Year
  Sex: Female
  Weight: 15.4 kg

DRUGS (6)
  1. LACOSAMIDE [Suspect]
     Indication: CONVULSION
     Dates: start: 20130107
  2. KEPPRA [Concomitant]
     Indication: EPILEPSY
     Dates: start: 20110728
  3. TOPAMAX [Concomitant]
     Indication: EPILEPSY
     Dates: start: 20110625
  4. TOPAMAX [Concomitant]
     Indication: EPILEPSY
     Dosage: 100 MG QAM; 125 MG QPM; ROUTE: G TUBE
  5. DIASTAT [Concomitant]
     Indication: EPILEPSY
     Route: 054
     Dates: start: 20110810
  6. MIRALAX [Concomitant]
     Indication: CONSTIPATION
     Dosage: I CAPFULL AS NEEDED
     Dates: start: 20071210

REACTIONS (1)
  - Status epilepticus [Recovered/Resolved]
